FAERS Safety Report 8023360-1 (Version None)
Quarter: 2012Q1

REPORT INFORMATION
  Report Type: 
  Country: None (occurrence: None)
  Receive Date: 20120104
  Receipt Date: 20111229
  Transmission Date: 20120608
  Serious: Yes (Other)
  Sender: FDA-Public Use
  Company Number: DZ-ROCHE-1015850

PATIENT
  Sex: Female

DRUGS (3)
  1. HERCEPTIN [Suspect]
     Dates: start: 20110701, end: 20110801
  2. HERCEPTIN [Suspect]
     Dosage: REINTRODUCED AFTER LOCAL SHORTAGE
  3. HERCEPTIN [Suspect]
     Indication: BREAST CANCER
     Route: 042
     Dates: start: 20100101

REACTIONS (4)
  - PAIN [None]
  - TETANY [None]
  - CHILLS [None]
  - PYREXIA [None]
